FAERS Safety Report 4318172-6 (Version None)
Quarter: 2004Q1

REPORT INFORMATION
  Report Type: 
  Country: None (occurrence: None)
  Receive Date: 20040317
  Receipt Date: 20031114
  Transmission Date: 20041129
  Serious: Yes (Other)
  Sender: FDA-Public Use
  Company Number: US-ROCHE-351903

PATIENT
  Age: 14 Year
  Sex: Male
  Weight: 72.6 kg

DRUGS (3)
  1. ACCUTANE [Suspect]
     Indication: DRUG USE FOR UNKNOWN INDICATION
     Dosage: DOSAGE REGIMEN REPORTED AS:  20MG EVERY AM AND EVERY PM AND 10MG EVERY AM.
     Route: 048
     Dates: start: 20030915
  2. ACCUTANE [Suspect]
     Dosage: DOSAGE REGIMEN REPORTED AS: 40MG EVERY AM AND 20MG AND 10MG EVERY PM.
     Route: 048
     Dates: start: 20031016
  3. ACCUTANE [Suspect]
     Route: 048

REACTIONS (1)
  - SYSTOLIC HYPERTENSION [None]
